FAERS Safety Report 5517958-X (Version None)
Quarter: 2007Q4

REPORT INFORMATION
  Report Type: 
  Country: None (occurrence: None)
  Receive Date: 20071115
  Receipt Date: 20071108
  Transmission Date: 20080405
  Serious: Yes (Other)
  Sender: FDA-Public Use
  Company Number: PHFR2007GB02393

PATIENT
  Age: 32 Year
  Sex: Male
  Weight: 63.5 kg

DRUGS (3)
  1. TEGRETOL RETARD [Suspect]
     Indication: CONVULSION
     Dosage: 300 MG, BID
     Route: 065
     Dates: start: 19970101
  2. TEGRETOL RETARD [Suspect]
     Dosage: 200 MG, BID
     Dates: start: 20070401
  3. KEPPRA [Concomitant]
     Route: 065
     Dates: start: 20070101

REACTIONS (8)
  - ACTIVITIES OF DAILY LIVING IMPAIRED [None]
  - CONVULSION [None]
  - DRUG EFFECT DECREASED [None]
  - IN VITRO FERTILISATION [None]
  - INFERTILITY [None]
  - SPERM COUNT DECREASED [None]
  - SPERMATOZOA ABNORMAL [None]
  - SPERMATOZOA PROGRESSIVE MOTILITY DECREASED [None]
